FAERS Safety Report 14615197 (Version 9)
Quarter: 2018Q4

REPORT INFORMATION
  Report Type: Spontaneous
  Country: US (occurrence: US)
  Receive Date: 20180308
  Receipt Date: 20181114
  Transmission Date: 20190204
  Serious: Yes (Hospitalization)
  Sender: FDA-Public Use
  Company Number: US-ACTELION-A-NJ2018-168787

PATIENT
  Age: 43 Year
  Sex: Male
  Weight: 124.72 kg

DRUGS (3)
  1. REMODULIN [Suspect]
     Active Substance: TREPROSTINIL
     Indication: PRODUCT USED FOR UNKNOWN INDICATION
     Dosage: 81 NG/KG, PER MIN
     Route: 042
  2. OPSUMIT [Suspect]
     Active Substance: MACITENTAN
     Indication: PULMONARY HYPERTENSION
     Dosage: 10 MG, QD
     Route: 048
  3. REVATIO [Concomitant]
     Active Substance: SILDENAFIL CITRATE

REACTIONS (21)
  - Vascular device infection [Unknown]
  - Feeling abnormal [Unknown]
  - Condition aggravated [Unknown]
  - Catheter management [Unknown]
  - Bacteraemia [Unknown]
  - Skin irritation [Unknown]
  - Product dose omission [Unknown]
  - Flushing [Unknown]
  - Overdose [Unknown]
  - Blood pressure systolic abnormal [Unknown]
  - Device connection issue [Unknown]
  - Dyspnoea [Unknown]
  - Unresponsive to stimuli [Unknown]
  - Respiratory disorder [Unknown]
  - Headache [Unknown]
  - Influenza [Unknown]
  - Skin infection [Unknown]
  - Syncope [Unknown]
  - Device malfunction [Unknown]
  - Device occlusion [Unknown]
  - Dyspnoea exertional [Unknown]
